FAERS Safety Report 17005392 (Version 1)
Quarter: 2019Q4

REPORT INFORMATION
  Report Type: Spontaneous
  Country: NL (occurrence: NL)
  Receive Date: 20191107
  Receipt Date: 20191107
  Transmission Date: 20200122
  Serious: Yes (Other)
  Sender: FDA-Public Use
  Company Number: NL-BAUSCH-BL-2019-059622

PATIENT
  Sex: Male
  Weight: 93 kg

DRUGS (1)
  1. CORTIMENT (BUDESONIDE) PROLONGED RELEASE TABLET [Suspect]
     Active Substance: BUDESONIDE
     Indication: COLITIS ULCERATIVE
     Route: 065
     Dates: start: 201808, end: 201903

REACTIONS (3)
  - Intraocular pressure increased [Unknown]
  - Product use issue [Unknown]
  - Blindness unilateral [Not Recovered/Not Resolved]

NARRATIVE: CASE EVENT DATE: 2018
